FAERS Safety Report 8055053-9 (Version None)
Quarter: 2012Q1

REPORT INFORMATION
  Report Type: 
  Country: None (occurrence: None)
  Receive Date: 20120119
  Receipt Date: 20120113
  Transmission Date: 20120608
  Serious: Yes (Other)
  Sender: FDA-Public Use
  Company Number: GB-PFIZER INC-2007094694

PATIENT
  Age: 56 Year
  Sex: Female
  Weight: 71 kg

DRUGS (10)
  1. GLUCOSAMINE [Concomitant]
     Dosage: UNK
  2. GABAPENTIN [Suspect]
     Dosage: 900 MG, 3X/DAY
     Dates: start: 20070101, end: 20071103
  3. GABAPENTIN [Suspect]
     Indication: NEURALGIA
     Dosage: 600 MG, 3X/DAY
     Dates: start: 20070727, end: 20070101
  4. LYRICA [Interacting]
     Indication: NEURALGIA
     Dosage: 375 MG, 1X/DAY
     Route: 048
     Dates: start: 20071104
  5. VITAMIN TAB [Concomitant]
     Dosage: UNK
  6. TRACE ELEMENTS [Concomitant]
     Dosage: UNK
  7. BISACODYL [Concomitant]
     Dosage: UNK
  8. CITALOPRAM [Interacting]
     Indication: DEPRESSED MOOD
     Dosage: 20 MG, 1X/DAY
     Route: 048
     Dates: start: 20070727
  9. COD-LIVER OIL [Concomitant]
     Dosage: UNK
  10. LIDOCAINE [Concomitant]
     Dosage: UNK
     Route: 062
     Dates: start: 20071019

REACTIONS (33)
  - DIARRHOEA [None]
  - TOOTH DISORDER [None]
  - MUCOUS MEMBRANE DISORDER [None]
  - OEDEMA [None]
  - URINARY RETENTION [None]
  - ATONIC URINARY BLADDER [None]
  - CONSTIPATION [None]
  - ANORGASMIA [None]
  - UNEVALUABLE EVENT [None]
  - PAIN [None]
  - MYALGIA [None]
  - ANAL SPHINCTER ATONY [None]
  - INCONTINENCE [None]
  - DRUG INEFFECTIVE [None]
  - BRADYCARDIA [None]
  - AMNESIA [None]
  - POLLAKIURIA [None]
  - GINGIVAL SWELLING [None]
  - DRUG INTERACTION [None]
  - ARTHRALGIA [None]
  - DISTURBANCE IN ATTENTION [None]
  - DRY EYE [None]
  - VISUAL ACUITY REDUCED [None]
  - QUALITY OF LIFE DECREASED [None]
  - WEIGHT INCREASED [None]
  - JOINT SWELLING [None]
  - HEADACHE [None]
  - LIBIDO DECREASED [None]
  - COGNITIVE DISORDER [None]
  - HYPOTENSION [None]
  - FLATULENCE [None]
  - BODY DYSMORPHIC DISORDER [None]
  - ACTIVITIES OF DAILY LIVING IMPAIRED [None]
